FAERS Safety Report 17505871 (Version 2)
Quarter: 2020Q2

REPORT INFORMATION
  Report Type: Spontaneous
  Country: US (occurrence: US)
  Receive Date: 20200306
  Receipt Date: 20200430
  Transmission Date: 20200713
  Serious: Yes (Death, Life-Threatening, Other)
  Sender: FDA-Public Use
  Company Number: US-BRISTOL-MYERS SQUIBB COMPANY-BMS-2020-019656

PATIENT
  Sex: Male
  Weight: 106.58 kg

DRUGS (1)
  1. ELIQUIS [Suspect]
     Active Substance: APIXABAN
     Indication: PRODUCT USED FOR UNKNOWN INDICATION
     Dosage: 2.5 MILLIGRAM, BID
     Route: 048

REACTIONS (13)
  - Hallucination [Unknown]
  - Weight decreased [Unknown]
  - Pneumonia aspiration [Fatal]
  - Pulmonary oedema [Unknown]
  - Osteoporosis [Unknown]
  - Hallucination, visual [Unknown]
  - Fall [Unknown]
  - Eating disorder [Unknown]
  - Vomiting [Unknown]
  - Chronic obstructive pulmonary disease [Fatal]
  - Spinal fracture [Unknown]
  - Malaise [Unknown]
  - Decreased appetite [Unknown]
